FAERS Safety Report 13504389 (Version 3)
Quarter: 2017Q2

REPORT INFORMATION
  Report Type: Spontaneous
  Country: SE (occurrence: SE)
  Receive Date: 20170502
  Receipt Date: 20170628
  Transmission Date: 20170830
  Serious: Yes (Hospitalization, Other)
  Sender: FDA-Public Use
  Company Number: SE-TEVA-762733ACC

PATIENT
  Age: 33 Year
  Sex: Female

DRUGS (13)
  1. POSTAFEN [Suspect]
     Active Substance: BUCLIZINE HYDROCHLORIDE
     Dosage: 200 MG (SINGLE DOSE)
     Route: 048
     Dates: start: 20150320, end: 20150320
  2. VENLAFAXIN ACTAVIS [Concomitant]
     Active Substance: VENLAFAXINE HYDROCHLORIDE
  3. IBUPROFEN ACTAVIS [Suspect]
     Active Substance: IBUPROFEN
     Dosage: ONE BLISTER
     Dates: start: 20150318, end: 20150318
  4. ALVEDON [Suspect]
     Active Substance: ACETAMINOPHEN
     Route: 048
     Dates: start: 20150320, end: 20150320
  5. ALVEDON [Suspect]
     Active Substance: ACETAMINOPHEN
     Dosage: ONE BLISTER
     Dates: start: 20150318, end: 20150318
  6. POSTAFEN [Suspect]
     Active Substance: BUCLIZINE HYDROCHLORIDE
     Dosage: ONE BLISTER
     Dates: start: 20150318, end: 20150318
  7. OMEPRAZOL ACTAVIS [Concomitant]
     Active Substance: OMEPRAZOLE
  8. IBUPROFEN ACTAVIS [Suspect]
     Active Substance: IBUPROFEN
     Dosage: 7000 MG (SINGLE DOSE)
     Route: 048
     Dates: start: 20150320, end: 20150320
  9. VOLTAREN [Suspect]
     Active Substance: DICLOFENAC SODIUM
     Dosage: 75 MG (SINGLE DOSE)
     Route: 048
     Dates: start: 20150320, end: 20150320
  10. IMOVANE [Suspect]
     Active Substance: ZOPICLONE
     Dosage: ONE BLISTER
     Dates: start: 20150318, end: 20150318
  11. PROPAVAN [Concomitant]
     Active Substance: PROPIOMAZINE
  12. MIRTAZAPINE ACTAVIS [Suspect]
     Active Substance: MIRTAZAPINE
     Dosage: ONE BLISTER
     Dates: start: 20150318, end: 20150318
  13. THERALEN [Concomitant]
     Active Substance: TRIMEPRAZINE

REACTIONS (2)
  - Toxicity to various agents [Recovered/Resolved]
  - Suicidal ideation [Recovered/Resolved]

NARRATIVE: CASE EVENT DATE: 20150320
